FAERS Safety Report 12520630 (Version 1)
Quarter: 2016Q3

REPORT INFORMATION
  Report Type: Spontaneous
  Country: None (occurrence: US)
  Receive Date: 20160701
  Receipt Date: 20160701
  Transmission Date: 20161109
  Serious: Yes (Hospitalization)
  Sender: FDA-Public Use
  Company Number: US-RARE DISEASE THERAPEUTICS, INC.-1054504

PATIENT
  Age: 7 Year
  Sex: Male
  Weight: 27.22 kg

DRUGS (10)
  1. MIRALAX [Concomitant]
     Active Substance: POLYETHYLENE GLYCOL 3350
  2. CYSTADANE [Suspect]
     Active Substance: BETAINE
     Indication: METHYLENETETRAHYDROFOLATE REDUCTASE DEFICIENCY
     Route: 048
     Dates: start: 20140722
  3. LEVOCARNITINE. [Concomitant]
     Active Substance: LEVOCARNITINE
  4. CLONAZEPAM. [Concomitant]
     Active Substance: CLONAZEPAM
  5. PHENOBARBITAL. [Concomitant]
     Active Substance: PHENOBARBITAL
  6. TYLENOL [Concomitant]
     Active Substance: ACETAMINOPHEN
  7. HYDROXOCOBALAMIN ACETATE. [Concomitant]
     Active Substance: HYDROXOCOBALAMIN ACETATE
  8. LEVETIRACETAM. [Concomitant]
     Active Substance: LEVETIRACETAM
  9. FOLIC ACID. [Concomitant]
     Active Substance: FOLIC ACID
  10. RANITIDINE. [Concomitant]
     Active Substance: RANITIDINE

REACTIONS (4)
  - Prescribed overdose [None]
  - Dehydration [None]
  - Constipation [None]
  - Vomiting [None]
